FAERS Safety Report 4505295-1 (Version None)
Quarter: 2004Q4

REPORT INFORMATION
  Report Type: 
  Country: None (occurrence: None)
  Receive Date: 20041018
  Receipt Date: 20040721
  Transmission Date: 20050328
  Serious: Yes (Hospitalization)
  Sender: FDA-Public Use
  Company Number: PHEH2004US07844

PATIENT
  Age: 73 Year
  Sex: Female

DRUGS (4)
  1. MIACALCIN [Suspect]
     Indication: OSTEOPOROSIS
     Dosage: 1 SPRAY QD, NASAL
     Route: 045
     Dates: start: 20040201
  2. CALCIUM [Concomitant]
  3. FLONASE [Concomitant]
  4. ADVAIR (SALMETEROL XINAFOATE) [Concomitant]

REACTIONS (7)
  - CHILLS [None]
  - COUGH [None]
  - DYSPNOEA [None]
  - NASAL DISCOMFORT [None]
  - PNEUMONIA [None]
  - PYREXIA [None]
  - SNEEZING [None]
